FAERS Safety Report 20070479 (Version 2)
Quarter: 2021Q4

REPORT INFORMATION
  Report Type: Spontaneous
  Country: JP (occurrence: JP)
  Receive Date: 20211115
  Receipt Date: 20211129
  Transmission Date: 20220303
  Serious: Yes (Death)
  Sender: FDA-Public Use
  Company Number: JP-DSJP-DSJ-2021-137462

PATIENT
  Age: 88 Year
  Sex: Female
  Weight: 40 kg

DRUGS (9)
  1. EDOXABAN TOSYLATE [Suspect]
     Active Substance: EDOXABAN TOSYLATE
     Indication: Joint arthroplasty
     Dosage: 30 MG, QD
     Route: 048
     Dates: start: 20211103, end: 20211103
  2. EDOXABAN TOSYLATE [Suspect]
     Active Substance: EDOXABAN TOSYLATE
     Indication: Deep vein thrombosis
     Dosage: 60 MG, QD
     Route: 048
     Dates: start: 20211104
  3. EDOXABAN TOSYLATE [Suspect]
     Active Substance: EDOXABAN TOSYLATE
     Indication: Embolism venous
  4. EDOXABAN TOSYLATE [Suspect]
     Active Substance: EDOXABAN TOSYLATE
     Indication: Embolism venous
  5. ATENOLOL [Concomitant]
     Active Substance: ATENOLOL
     Indication: Hypertension
     Dosage: 25 MG, QD
     Route: 048
  6. AMLODIPINE BESYLATE [Concomitant]
     Active Substance: AMLODIPINE BESYLATE
     Indication: Hypertension
     Dosage: 5 MG, BID
     Route: 048
  7. ASPIRIN [Concomitant]
     Active Substance: ASPIRIN
     Indication: Lacunar infarction
     Dosage: 100 MG, QD
     Route: 048
     Dates: end: 20211031
  8. ASPIRIN [Concomitant]
     Active Substance: ASPIRIN
     Indication: Prophylaxis
     Dosage: 100 MG, QD
     Route: 048
     Dates: start: 20211103
  9. ETIZOLAM [Concomitant]
     Active Substance: ETIZOLAM
     Indication: Anxiety disorder
     Dosage: 1.5 MG, TID
     Route: 048

REACTIONS (1)
  - Deep vein thrombosis [Fatal]

NARRATIVE: CASE EVENT DATE: 20211104
